FAERS Safety Report 18917087 (Version 5)
Quarter: 2021Q3

REPORT INFORMATION
  Report Type: Report from Study
  Country: US (occurrence: US)
  Receive Date: 20210219
  Receipt Date: 20210823
  Transmission Date: 20211014
  Serious: Yes (Other)
  Sender: FDA-Public Use
  Company Number: US-MALLINCKRODT-T202100012

PATIENT
  Age: 47 Year
  Sex: Female
  Weight: 91 kg

DRUGS (11)
  1. REPOSITORY CORTICOTROPIN INJECTION [Suspect]
     Active Substance: CORTICOTROPIN
     Indication: SYSTEMIC LUPUS ERYTHEMATOSUS
     Dosage: 80U, TWICE A WEEK
     Route: 058
     Dates: start: 20201209
  2. REPOSITORY CORTICOTROPIN INJECTION [Suspect]
     Active Substance: CORTICOTROPIN
     Dosage: 20 UNITS EVERY TWO DAYS
     Route: 065
     Dates: start: 20210128, end: 2021
  3. REPOSITORY CORTICOTROPIN INJECTION [Suspect]
     Active Substance: CORTICOTROPIN
     Dosage: 40 UNITS 3 TIMES WEEKLY
     Route: 065
     Dates: start: 2021, end: 2021
  4. REPOSITORY CORTICOTROPIN INJECTION [Suspect]
     Active Substance: CORTICOTROPIN
     Dosage: 60 UNITS, EVERY THREE DAYS
     Route: 065
     Dates: start: 202107
  5. REPOSITORY CORTICOTROPIN INJECTION [Suspect]
     Active Substance: CORTICOTROPIN
     Dosage: 40U, EVERY THREE DAYS
     Route: 058
  6. WELLBUTRIN [Concomitant]
     Active Substance: BUPROPION HYDROCHLORIDE
     Indication: PRODUCT USED FOR UNKNOWN INDICATION
     Dosage: UNK
     Route: 065
  7. REPOSITORY CORTICOTROPIN INJECTION [Suspect]
     Active Substance: CORTICOTROPIN
     Dosage: 40 UNITS, EVERY 4 DAYS
     Route: 058
  8. REPOSITORY CORTICOTROPIN INJECTION [Suspect]
     Active Substance: CORTICOTROPIN
     Dosage: 40 UNITS, EVERY 4 DAYS
     Route: 065
     Dates: start: 2021, end: 2021
  9. REPOSITORY CORTICOTROPIN INJECTION [Suspect]
     Active Substance: CORTICOTROPIN
     Dosage: 80 UNITS THREE TIMES WEEKLY.
     Route: 065
     Dates: start: 2021, end: 202107
  10. NALTREXONE [Concomitant]
     Active Substance: NALTREXONE
     Indication: PRODUCT USED FOR UNKNOWN INDICATION
     Dosage: UNK
     Route: 065
  11. REPOSITORY CORTICOTROPIN INJECTION [Suspect]
     Active Substance: CORTICOTROPIN
     Dosage: 80 UNITS, EVERY FOUR DAYS
     Route: 065
     Dates: start: 202107

REACTIONS (19)
  - Mixed connective tissue disease [Not Recovered/Not Resolved]
  - Factor V Leiden mutation [Not Recovered/Not Resolved]
  - Spinal meningeal cyst [Not Recovered/Not Resolved]
  - Pain [Not Recovered/Not Resolved]
  - Hepatic pain [Unknown]
  - Urinary tract infection [Recovered/Resolved]
  - Systemic lupus erythematosus [Not Recovered/Not Resolved]
  - Weight increased [Unknown]
  - Blood pressure increased [Unknown]
  - Stress [Unknown]
  - Insomnia [Recovering/Resolving]
  - Injection site bruising [Not Recovered/Not Resolved]
  - Heart rate increased [Unknown]
  - Cataract [Not Recovered/Not Resolved]
  - Fungal infection [Unknown]
  - Musculoskeletal chest pain [Not Recovered/Not Resolved]
  - Blood glucose increased [Unknown]
  - Bone pain [Not Recovered/Not Resolved]
  - Glaucoma [Not Recovered/Not Resolved]

NARRATIVE: CASE EVENT DATE: 202012
